FAERS Safety Report 26159556 (Version 1)
Quarter: 2025Q4

REPORT INFORMATION
  Report Type: Spontaneous
  Country: GB (occurrence: GB)
  Receive Date: 20251216
  Receipt Date: 20251216
  Transmission Date: 20260117
  Serious: Yes (Hospitalization, Other)
  Sender: AMGEN
  Company Number: GB-AMGEN-GBRSP2025244890

PATIENT
  Age: 82 Year
  Sex: Male

DRUGS (4)
  1. ADALIMUMAB [Suspect]
     Active Substance: ADALIMUMAB
     Indication: Crohn^s disease
     Dosage: UNK
     Route: 065
     Dates: start: 2008
  2. ADALIMUMAB [Suspect]
     Active Substance: ADALIMUMAB
     Indication: Aortic valve incompetence
     Dosage: UNK
     Route: 065
     Dates: start: 2008
  3. ADALIMUMAB [Suspect]
     Active Substance: ADALIMUMAB
     Indication: Fibrosis
  4. ADALIMUMAB [Suspect]
     Active Substance: ADALIMUMAB
     Indication: Axial spondyloarthritis

REACTIONS (7)
  - Rhodococcus infection [Unknown]
  - Axial spondyloarthritis [Unknown]
  - Rash [Unknown]
  - Impaired healing [Unknown]
  - Inflammation of wound [Unknown]
  - Wound abscess [Unknown]
  - Deep vein thrombosis [Unknown]
